FAERS Safety Report 17255517 (Version 1)
Quarter: 2020Q1

REPORT INFORMATION
  Report Type: Report from Study
  Country: None (occurrence: US)
  Receive Date: 20200110
  Receipt Date: 20200110
  Transmission Date: 20200409
  Serious: Yes (Other)
  Sender: FDA-Public Use
  Company Number: US-ABBVIE-19K-163-3158345-00

PATIENT
  Age: 70 Year
  Sex: Female

DRUGS (1)
  1. IMBRUVICA [Suspect]
     Active Substance: IBRUTINIB
     Indication: WALDENSTROM^S MACROGLOBULINAEMIA
     Dosage: 420 MG, QD
     Route: 048
     Dates: start: 20190709

REACTIONS (16)
  - Groin pain [Recovered/Resolved]
  - Oral herpes [Unknown]
  - Fatigue [Not Recovered/Not Resolved]
  - Arthritis [Unknown]
  - Neuropathy peripheral [Unknown]
  - Cataract [Not Recovered/Not Resolved]
  - Confusional state [Not Recovered/Not Resolved]
  - Anaemia [Unknown]
  - Nasopharyngitis [Recovering/Resolving]
  - Aphthous ulcer [Not Recovered/Not Resolved]
  - Diarrhoea [Recovered/Resolved]
  - Anaemia [Not Recovered/Not Resolved]
  - Hot flush [Not Recovered/Not Resolved]
  - Amnesia [Not Recovered/Not Resolved]
  - Alopecia [Not Recovered/Not Resolved]
  - Neuropathy peripheral [Not Recovered/Not Resolved]

NARRATIVE: CASE EVENT DATE: 20190710
